FAERS Safety Report 11814436 (Version 1)
Quarter: 2015Q4

REPORT INFORMATION
  Report Type: Spontaneous
  Country: VE (occurrence: VE)
  Receive Date: 20151209
  Receipt Date: 20151209
  Transmission Date: 20160305
  Serious: Yes (Other)
  Sender: FDA-Public Use
  Company Number: VE-PFIZER INC-2015429176

PATIENT
  Age: 73 Year
  Sex: Male

DRUGS (1)
  1. MEDROL [Suspect]
     Active Substance: METHYLPREDNISOLONE
     Indication: ADRENAL DISORDER
     Dosage: 4 MG, 2X/DAY
     Dates: start: 2013

REACTIONS (5)
  - Vomiting [Unknown]
  - Drug dose omission [Unknown]
  - Headache [Unknown]
  - Blindness [Unknown]
  - Eating disorder [Unknown]

NARRATIVE: CASE EVENT DATE: 2015
